FAERS Safety Report 16811647 (Version 1)
Quarter: 2019Q3

REPORT INFORMATION
  Report Type: Report from Study
  Country: US (occurrence: US)
  Receive Date: 20190916
  Receipt Date: 20190916
  Transmission Date: 20191005
  Serious: Yes (Other)
  Sender: FDA-Public Use
  Company Number: US-JNJFOC-20190904035

PATIENT
  Age: 63 Year
  Sex: Male

DRUGS (1)
  1. IBRUTINIB [Suspect]
     Active Substance: IBRUTINIB
     Indication: CHRONIC LYMPHOCYTIC LEUKAEMIA
     Route: 065

REACTIONS (5)
  - Renal arteriosclerosis [Unknown]
  - Renal tubular injury [Unknown]
  - Glomerulosclerosis [Unknown]
  - Renal tubular atrophy [Unknown]
  - Kidney fibrosis [Unknown]
